FAERS Safety Report 8598394-9 (Version None)
Quarter: 2012Q3

REPORT INFORMATION
  Report Type: 
  Country: None (occurrence: None)
  Receive Date: 20120816
  Receipt Date: 20120807
  Transmission Date: 20120928
  Serious: Yes (Hospitalization)
  Sender: FDA-Public Use
  Company Number: US-ALEXION PHARMACEUTICALS INC.-A201201484

PATIENT
  Age: 28 Year
  Sex: Male

DRUGS (11)
  1. SOLIRIS [Suspect]
     Indication: ANTIPHOSPHOLIPID SYNDROME
     Dosage: 600 MG, QW
     Route: 042
     Dates: start: 20071101
  2. PREDNISONE TAB [Concomitant]
     Dosage: 10 MG, QD
  3. SOLIRIS [Suspect]
     Dosage: 900 MG, QW X3 WEEKS
     Route: 042
  4. SOLIRIS [Suspect]
     Dosage: 1200 MG, Q2W
     Route: 042
  5. BIVALIRUDIN [Concomitant]
     Dosage: UNK
  6. LEPIRUDIN [Concomitant]
     Dosage: 1.25 MG/KG, BID
     Route: 058
  7. WARFARIN SODIUM [Concomitant]
     Dosage: UNK
  8. PREDNISONE TAB [Concomitant]
     Dosage: 60 MG, QD
  9. HYDROXYCHLOROQUINE SULFATE [Concomitant]
     Dosage: UNK
  10. CIPROFLOXACIN [Concomitant]
     Indication: PROPHYLAXIS
  11. SOLIRIS [Suspect]
     Dosage: 600 MG EVERY MONTH
     Route: 042

REACTIONS (8)
  - ACUTE RESPIRATORY DISTRESS SYNDROME [None]
  - CONDITION AGGRAVATED [None]
  - THROMBOCYTOPENIA [None]
  - CEREBRAL INFARCTION [None]
  - THROMBOTIC MICROANGIOPATHY [None]
  - ANAEMIA [None]
  - STAPHYLOCOCCAL SEPSIS [None]
  - HEMIPARESIS [None]
